FAERS Safety Report 4702819-6 (Version None)
Quarter: 2005Q2

REPORT INFORMATION
  Report Type: 
  Country: None (occurrence: None)
  Receive Date: 20050629
  Receipt Date: 20050602
  Transmission Date: 20051028
  Serious: Yes (Hospitalization)
  Sender: FDA-Public Use
  Company Number: FR-SANOFI-SYNTHELABO-F01200500868

PATIENT
  Sex: Male

DRUGS (8)
  1. OXALIPLATIN [Suspect]
     Indication: COLON CANCER
     Route: 042
     Dates: start: 20050510, end: 20050510
  2. FLUOROURACIL [Suspect]
     Dosage: 400MG/M2 IV BOLUS AND 600MG/M2 CONTINUOUS INFUSION Q2W
     Route: 042
  3. ELVORINE [Suspect]
     Dosage: 100 MG/M2 TWICE Q2W
     Route: 042
  4. FOLINIC ACID [Suspect]
     Route: 042
  5. ATENOLOL [Concomitant]
     Dosage: UNK
     Route: 065
     Dates: start: 20030827
  6. PRAVASTATIN [Concomitant]
     Dosage: UNK
     Route: 065
     Dates: start: 20030827
  7. AMLODIPINE [Concomitant]
     Dosage: UNK
     Route: 065
     Dates: start: 20030926
  8. ASPIRIN [Concomitant]
     Dosage: UNK
     Route: 065
     Dates: start: 20010918

REACTIONS (1)
  - PANCREATOLITHIASIS [None]
